FAERS Safety Report 6012002-2 (Version None)
Quarter: 2008Q4

REPORT INFORMATION
  Report Type: 
  Country: None (occurrence: None)
  Receive Date: 20081218
  Receipt Date: 20081024
  Transmission Date: 20090506
  Serious: No
  Sender: FDA-Public Use
  Company Number: US-ASTRAZENECA-2008UW23777

PATIENT
  Age: 62 Year
  Sex: Female
  Weight: 59 kg

DRUGS (2)
  1. CRESTOR [Suspect]
     Indication: BLOOD CHOLESTEROL INCREASED
     Route: 048
     Dates: start: 20081003
  2. ELAVIL [Concomitant]

REACTIONS (2)
  - MUSCULAR WEAKNESS [None]
  - TREMOR [None]
